FAERS Safety Report 5965358-0 (Version None)
Quarter: 2008Q4

REPORT INFORMATION
  Report Type: 
  Country: None (occurrence: None)
  Receive Date: 20081125
  Receipt Date: 20081117
  Transmission Date: 20090506
  Serious: Yes (Death, Other)
  Sender: FDA-Public Use
  Company Number: JP-ASTRAZENECA-2008SE04399

PATIENT
  Sex: Male

DRUGS (9)
  1. CANDESARTAN CILEXETIL [Suspect]
     Route: 048
  2. KLACID [Interacting]
     Indication: INFECTION
     Route: 065
     Dates: start: 20070612, end: 20070618
  3. COLCHICINE [Interacting]
     Indication: GOUT
     Route: 048
     Dates: start: 20070601, end: 20070621
  4. COLCHICINE [Interacting]
     Route: 048
  5. AZITHROMYCIN [Suspect]
     Indication: SEPSIS
     Route: 065
     Dates: start: 20070623, end: 20070623
  6. FUROSEMIDE [Suspect]
     Route: 065
  7. LISINOPRIL [Suspect]
     Route: 048
  8. AMLODIPINE [Concomitant]
     Indication: ESSENTIAL HYPERTENSION
     Route: 065
  9. CANDESARTAN CILEXETIL,HYDROCHLOROTHIAZIDE [Concomitant]
     Indication: URINE ANALYSIS ABNORMAL
     Route: 065

REACTIONS (7)
  - BONE MARROW FAILURE [None]
  - DRUG INTERACTION [None]
  - DRUG TOXICITY [None]
  - MULTI-ORGAN FAILURE [None]
  - NEUTROPENIC SEPSIS [None]
  - PANCYTOPENIA [None]
  - RENAL FAILURE ACUTE [None]
